FAERS Safety Report 10911701 (Version 1)
Quarter: 2015Q1

REPORT INFORMATION
  Report Type: Spontaneous
  Country: US (occurrence: US)
  Receive Date: 20150313
  Receipt Date: 20150313
  Transmission Date: 20150721
  Serious: No
  Sender: FDA-Public Use
  Company Number: US-BIOGENIDEC-2015BI025966

PATIENT
  Sex: Female

DRUGS (16)
  1. DETROL [Concomitant]
     Active Substance: TOLTERODINE TARTRATE
  2. MOTRIN [Concomitant]
     Active Substance: IBUPROFEN
  3. ATIVAN [Concomitant]
     Active Substance: LORAZEPAM
  4. ZOLOFT [Concomitant]
     Active Substance: SERTRALINE HYDROCHLORIDE
  5. TYLENOL [Concomitant]
     Active Substance: ACETAMINOPHEN
  6. MACRODANTIN [Concomitant]
     Active Substance: NITROFURANTOIN
  7. AMANTADINE [Concomitant]
     Active Substance: AMANTADINE
  8. BABY ASPIRIN [Concomitant]
     Active Substance: ASPIRIN
  9. TECFIDERA [Suspect]
     Active Substance: DIMETHYL FUMARATE
     Indication: MULTIPLE SCLEROSIS
     Route: 048
     Dates: start: 20140404, end: 20140410
  10. LISINOPRIL. [Concomitant]
     Active Substance: LISINOPRIL
  11. TECFIDERA [Suspect]
     Active Substance: DIMETHYL FUMARATE
     Indication: MULTIPLE SCLEROSIS
     Route: 048
     Dates: start: 20140411
  12. ZANIAC [Concomitant]
  13. NORVASC [Concomitant]
     Active Substance: AMLODIPINE BESYLATE
  14. BACLOFEN. [Concomitant]
     Active Substance: BACLOFEN
  15. VITAMIN D [Concomitant]
     Active Substance: CHOLECALCIFEROL
  16. OMEPRAZOLE. [Concomitant]
     Active Substance: OMEPRAZOLE

REACTIONS (1)
  - Urinary tract infection [Unknown]
